FAERS Safety Report 6044997-5 (Version None)
Quarter: 2009Q1

REPORT INFORMATION
  Report Type: 
  Country: None (occurrence: None)
  Receive Date: 20090116
  Receipt Date: 20090116
  Transmission Date: 20090719
  Serious: No
  Sender: FDA-Public Use
  Company Number: None

PATIENT
  Sex: Female
  Weight: 62.1428 kg

DRUGS (1)
  1. BUSPAR [Suspect]
     Dosage: 10MG BID PO
     Route: 048

REACTIONS (1)
  - NONSPECIFIC REACTION [None]
